FAERS Safety Report 6345394-5 (Version None)
Quarter: 2009Q3

REPORT INFORMATION
  Report Type: 
  Country: None (occurrence: None)
  Receive Date: 20090909
  Receipt Date: 20090831
  Transmission Date: 20100115
  Serious: Yes (Other)
  Sender: FDA-Public Use
  Company Number: IL-ABBOTT-09P-082-0594468-00

PATIENT
  Sex: Male

DRUGS (7)
  1. HUMIRA [Suspect]
     Indication: PSORIATIC ARTHROPATHY
     Route: 058
     Dates: start: 20070719
  2. METHOTREXATE [Concomitant]
     Indication: DRUG USE FOR UNKNOWN INDICATION
  3. PENEDIL [Concomitant]
     Indication: DRUG USE FOR UNKNOWN INDICATION
  4. XATRAL [Concomitant]
     Indication: DRUG USE FOR UNKNOWN INDICATION
  5. ENALADEX [Concomitant]
     Indication: DRUG USE FOR UNKNOWN INDICATION
  6. SIMOVIL [Concomitant]
     Indication: DRUG USE FOR UNKNOWN INDICATION
  7. CIPROLEX [Concomitant]
     Indication: DEPRESSION

REACTIONS (2)
  - MYCOSIS FUNGOIDES [None]
  - RASH [None]
